FAERS Safety Report 23672555 (Version 1)
Quarter: 2024Q1

REPORT INFORMATION
  Report Type: Spontaneous
  Country: HK (occurrence: HK)
  Receive Date: 20240326
  Receipt Date: 20240326
  Transmission Date: 20240409
  Serious: Yes (Other)
  Sender: FDA-Public Use
  Company Number: HK-ROCHE-3526674

PATIENT
  Age: 69 Year
  Sex: Female

DRUGS (1)
  1. MIRCERA [Suspect]
     Active Substance: METHOXY POLYETHYLENE GLYCOL-EPOETIN BETA
     Indication: Anaemia
     Route: 065
     Dates: start: 202004

REACTIONS (6)
  - Haemolysis [Unknown]
  - Bone marrow reticulin fibrosis [Unknown]
  - Metal poisoning [Unknown]
  - Aplasia pure red cell [Unknown]
  - Infection [Unknown]
  - Haemorrhage [Unknown]
